FAERS Safety Report 25675413 (Version 1)
Quarter: 2025Q3

REPORT INFORMATION
  Report Type: Spontaneous
  Country: US (occurrence: US)
  Receive Date: 20250813
  Receipt Date: 20250813
  Transmission Date: 20251021
  Serious: Yes (Death, Other)
  Sender: DR REDDYS
  Company Number: US-DRL-USA-USA/2025/08/011853

PATIENT
  Age: 51 Year
  Sex: Female

DRUGS (6)
  1. LEVETIRACETAM [Suspect]
     Active Substance: LEVETIRACETAM
     Indication: Product used for unknown indication
  2. TIZANIDINE [Suspect]
     Active Substance: TIZANIDINE
     Indication: Suicide attempt
  3. CITALOPRAM [Suspect]
     Active Substance: CITALOPRAM
     Indication: Product used for unknown indication
  4. TOPIRAMATE [Suspect]
     Active Substance: TOPIRAMATE
     Indication: Suicide attempt
  5. DULOXETINE [Suspect]
     Active Substance: DULOXETINE
     Indication: Product used for unknown indication
  6. ESZOPICLONE [Suspect]
     Active Substance: ESZOPICLONE
     Indication: Suicide attempt

REACTIONS (3)
  - Intentional product misuse [Fatal]
  - Completed suicide [Fatal]
  - Toxicity to various agents [Fatal]
